FAERS Safety Report 10880362 (Version 16)
Quarter: 2016Q2

REPORT INFORMATION
  Report Type: Report from Study
  Country: CA (occurrence: CA)
  Receive Date: 20150302
  Receipt Date: 20160530
  Transmission Date: 20160815
  Serious: Yes (Other)
  Sender: FDA-Public Use
  Company Number: CA-ROCHE-1460649

PATIENT
  Age: 29 Year
  Sex: Female

DRUGS (13)
  1. ACTEMRA [Suspect]
     Active Substance: TOCILIZUMAB
     Route: 042
     Dates: start: 20141016
  2. ACTEMRA [Suspect]
     Active Substance: TOCILIZUMAB
     Route: 042
  3. ENBREL [Concomitant]
     Active Substance: ETANERCEPT
  4. PREDNISONE. [Concomitant]
     Active Substance: PREDNISONE
  5. ACTEMRA [Suspect]
     Active Substance: TOCILIZUMAB
     Route: 042
     Dates: start: 20150205
  6. ACTEMRA [Suspect]
     Active Substance: TOCILIZUMAB
     Route: 042
  7. ACTEMRA [Suspect]
     Active Substance: TOCILIZUMAB
     Route: 042
     Dates: start: 20140909
  8. ACTEMRA [Suspect]
     Active Substance: TOCILIZUMAB
     Route: 042
     Dates: start: 20141218
  9. METHOTREXATE [Concomitant]
     Active Substance: METHOTREXATE
  10. SULFASALAZINE. [Concomitant]
     Active Substance: SULFASALAZINE
  11. PLAQUENIL [Concomitant]
     Active Substance: HYDROXYCHLOROQUINE SULFATE
  12. CELEBREX [Concomitant]
     Active Substance: CELECOXIB
  13. ACTEMRA [Suspect]
     Active Substance: TOCILIZUMAB
     Indication: RHEUMATOID ARTHRITIS
     Route: 042
     Dates: start: 20140812

REACTIONS (17)
  - Vomiting [Recovering/Resolving]
  - Infusion related reaction [Unknown]
  - Arthralgia [Unknown]
  - Lower respiratory tract congestion [Recovering/Resolving]
  - Body temperature increased [Unknown]
  - Pyrexia [Recovered/Resolved]
  - Heart rate increased [Unknown]
  - Diarrhoea [Unknown]
  - Miliaria [Recovered/Resolved]
  - Nasal congestion [Recovering/Resolving]
  - Oropharyngeal pain [Recovering/Resolving]
  - Bronchitis [Recovered/Resolved]
  - Cough [Recovering/Resolving]
  - Headache [Recovering/Resolving]
  - Haematochezia [Unknown]
  - Migraine [Unknown]
  - Heart rate increased [Unknown]

NARRATIVE: CASE EVENT DATE: 20140909
